FAERS Safety Report 17123306 (Version 1)
Quarter: 2019Q4

REPORT INFORMATION
  Report Type: Spontaneous
  Country: CA (occurrence: CA)
  Receive Date: 20191206
  Receipt Date: 20191206
  Transmission Date: 20200122
  Serious: Yes (Other)
  Sender: FDA-Public Use
  Company Number: CA-TAKEDA-2019TUS069138

PATIENT
  Age: 67 Year
  Sex: Male

DRUGS (1)
  1. TRINTELLIX [Suspect]
     Active Substance: VORTIOXETINE HYDROBROMIDE
     Indication: DEPRESSION
     Dosage: 10 MILLIGRAM, QD
     Route: 065

REACTIONS (7)
  - Speech disorder [Unknown]
  - Suicide threat [Unknown]
  - Self-injurious ideation [Unknown]
  - Drug ineffective [Unknown]
  - Social avoidant behaviour [Not Recovered/Not Resolved]
  - Abnormal behaviour [Unknown]
  - Asthenia [Unknown]
